FAERS Safety Report 8558224-8 (Version None)
Quarter: 2012Q3

REPORT INFORMATION
  Report Type: 
  Country: None (occurrence: None)
  Receive Date: 20120801
  Receipt Date: 20120722
  Transmission Date: 20120928
  Serious: Yes (Death, Life-Threatening, Hospitalization)
  Sender: FDA-Public Use
  Company Number: JP-NAPPMUNDI-MAG-2012-0002240

PATIENT
  Sex: Male

DRUGS (17)
  1. OXYCODONE HCL [Suspect]
     Dosage: 40 MG, DAILY
     Route: 048
     Dates: start: 20120616, end: 20120617
  2. LANSOPRAZOLE [Concomitant]
     Indication: PROPHYLAXIS
     Dosage: UNK
     Route: 048
     Dates: start: 20120528, end: 20120703
  3. LYRICA [Concomitant]
     Indication: CANCER PAIN
     Dosage: UNK
     Route: 048
     Dates: start: 20120620, end: 20120624
  4. VOLTAREN [Concomitant]
     Dosage: UNK
     Route: 048
     Dates: start: 20120528
  5. ZOMETA [Concomitant]
     Dosage: UNK
     Dates: start: 20120628, end: 20120628
  6. FLOMAX [Concomitant]
     Dosage: UNK
     Route: 048
     Dates: start: 20120618, end: 20120621
  7. MAGMITT [Concomitant]
     Indication: PROPHYLAXIS
     Dosage: UNK
     Route: 048
     Dates: start: 20120623, end: 20120703
  8. OXYCODONE HCL [Suspect]
     Dosage: 60 MG, UNK
     Route: 048
     Dates: start: 20120618, end: 20120622
  9. OXYCODONE HCL [Suspect]
     Dosage: 5 MG, DAILY
     Route: 048
     Dates: start: 20120615, end: 20120617
  10. CYMBALTA [Concomitant]
     Indication: PAIN
     Dosage: UNK
     Route: 048
     Dates: start: 20120625, end: 20120703
  11. OXYCODONE HCL [Suspect]
     Indication: CANCER PAIN
     Dosage: 90 MG, DAILY
     Route: 048
     Dates: start: 20120625
  12. OXYCODONE HCL [Suspect]
     Dosage: 75 MG, DAILY
     Route: 048
     Dates: start: 20120623
  13. VOLTAREN [Concomitant]
     Indication: CANCER PAIN
     Dosage: UNK
     Route: 048
     Dates: start: 20120526
  14. CYMBALTA [Concomitant]
     Indication: CANCER PAIN
     Dosage: UNK
     Route: 048
     Dates: start: 20120625, end: 20120703
  15. OXYCODONE HCL [Suspect]
     Indication: CANCER PAIN
     Dosage: 10 MG, DAILY
     Route: 048
     Dates: start: 20120618, end: 20120704
  16. HYPEN                              /00613801/ [Concomitant]
     Indication: CANCER PAIN
     Dosage: UNK
     Route: 048
     Dates: start: 20120628, end: 20120703
  17. LASIX [Concomitant]
     Dosage: UNK
     Dates: start: 20120630, end: 20120701

REACTIONS (2)
  - SOMNOLENCE [None]
  - PNEUMONIA ASPIRATION [None]
